FAERS Safety Report 23652674 (Version 4)
Quarter: 2024Q2

REPORT INFORMATION
  Report Type: Spontaneous
  Country: IT (occurrence: IT)
  Receive Date: 20240320
  Receipt Date: 20240409
  Transmission Date: 20240715
  Serious: Yes (Death, Other)
  Sender: FDA-Public Use
  Company Number: IT-CHIESI-2024CHF01426

PATIENT
  Age: 44 Year
  Sex: Male
  Weight: 70 kg

DRUGS (12)
  1. CANGRELOR [Suspect]
     Active Substance: CANGRELOR
     Indication: Acute myocardial infarction
     Dosage: UNK
     Route: 042
     Dates: start: 20240217, end: 20240217
  2. CANGRELOR [Suspect]
     Active Substance: CANGRELOR
     Indication: Percutaneous coronary intervention
  3. CANGRELOR [Suspect]
     Active Substance: CANGRELOR
     Indication: Stent placement
  4. HEPARIN [Concomitant]
     Active Substance: HEPARIN SODIUM
     Indication: Product used for unknown indication
     Dosage: UNK
     Dates: start: 20240217, end: 20240217
  5. ASPIRIN [Concomitant]
     Active Substance: ASPIRIN
     Indication: Acute myocardial infarction
     Dosage: UNK
     Dates: start: 20240217, end: 20240217
  6. Flectadol [Concomitant]
     Indication: Product used for unknown indication
     Dosage: UNK
     Dates: start: 20240217, end: 20240217
  7. MORPHINE [Concomitant]
     Active Substance: MORPHINE
     Indication: Product used for unknown indication
     Dosage: UNK
     Dates: start: 20240217, end: 20240217
  8. HEPARIN [Concomitant]
     Active Substance: HEPARIN SODIUM
     Indication: Acute myocardial infarction
     Dosage: UNK
     Dates: start: 20240217, end: 20240217
  9. METOCLOPRAMIDE HYDROCHLORIDE [Concomitant]
     Active Substance: METOCLOPRAMIDE HYDROCHLORIDE
     Indication: Acute myocardial infarction
     Dosage: UNK
     Route: 042
     Dates: start: 20240217, end: 20240217
  10. LIDOCAINE [Concomitant]
     Active Substance: LIDOCAINE
     Indication: Acute myocardial infarction
     Dosage: UNK
     Route: 042
     Dates: start: 20240217, end: 20240217
  11. SODIUM CHLORIDE [Concomitant]
     Active Substance: SODIUM CHLORIDE
     Indication: Acute myocardial infarction
     Dosage: UNK
     Dates: start: 20240217, end: 20240217
  12. HEPARIN [Concomitant]
     Active Substance: HEPARIN SODIUM
     Indication: Product used for unknown indication
     Dosage: UNK

REACTIONS (5)
  - Cerebral haemorrhage [Fatal]
  - Brain death [Fatal]
  - Headache [Fatal]
  - Coma [Fatal]
  - Off label use [Recovered/Resolved]

NARRATIVE: CASE EVENT DATE: 20240217
